FAERS Safety Report 5852526-1 (Version None)
Quarter: 2008Q3

REPORT INFORMATION
  Report Type: 
  Country: None (occurrence: None)
  Receive Date: 20080820
  Receipt Date: 20080820
  Transmission Date: 20090109
  Serious: Yes (Other)
  Sender: FDA-Public Use
  Company Number: None

PATIENT
  Age: 60 Year
  Sex: Male
  Weight: 74.8435 kg

DRUGS (2)
  1. EMSAM [Suspect]
     Indication: PRURITUS
     Dosage: 1 PATCH DAILY TRANSDERMAL
     Route: 062
  2. EMSAM [Suspect]
     Indication: RASH
     Dosage: 1 PATCH DAILY TRANSDERMAL
     Route: 062

REACTIONS (4)
  - APPLICATION SITE PRURITUS [None]
  - APPLICATION SITE RASH [None]
  - EJACULATION DISORDER [None]
  - ERYTHEMA [None]
